FAERS Safety Report 8253990 (Version 5)
Quarter: 2014Q1

REPORT INFORMATION
  Report Type: Spontaneous
  Country: US (occurrence: US)
  Receive Date: 20111118
  Receipt Date: 20140101
  Transmission Date: 20141002
  Serious: Yes (Hospitalization, Other)
  Sender: FDA-Public Use
  Company Number: US-BIOGENIDEC-2011BI043497

PATIENT
  Age: 70 Year
  Sex: Female

DRUGS (3)
  1. AVONEX [Suspect]
     Indication: MULTIPLE SCLEROSIS
     Route: 030
     Dates: start: 20020223
  2. PLAQUENIL [Concomitant]
     Indication: SYSTEMIC LUPUS ERYTHEMATOSUS
  3. B 12 [Concomitant]

REACTIONS (23)
  - Hypokalaemia [Recovered/Resolved]
  - Dehydration [Recovered/Resolved]
  - Renal failure [Not Recovered/Not Resolved]
  - Spinal column injury [Recovered/Resolved]
  - Procedural pain [Not Recovered/Not Resolved]
  - Post procedural swelling [Recovered/Resolved]
  - Post procedural contusion [Recovered/Resolved]
  - Hypertension [Not Recovered/Not Resolved]
  - Contusion [Not Recovered/Not Resolved]
  - Coagulation time prolonged [Not Recovered/Not Resolved]
  - Influenza [Recovered/Resolved]
  - Gastroenteritis norovirus [Recovered/Resolved]
  - Injection site induration [Recovered/Resolved]
  - Haemorrhagic diathesis [Recovered/Resolved]
  - Feeling cold [Unknown]
  - Haemorrhage [Recovered/Resolved]
  - Asthenia [Not Recovered/Not Resolved]
  - Headache [Recovered/Resolved]
  - Tension headache [Not Recovered/Not Resolved]
  - Neck pain [Recovered/Resolved]
  - Anaemia [Not Recovered/Not Resolved]
  - Decreased appetite [Recovered/Resolved]
  - Chills [Unknown]
